FAERS Safety Report 19632725 (Version 3)
Quarter: 2021Q4

REPORT INFORMATION
  Report Type: Spontaneous
  Country: JP (occurrence: JP)
  Receive Date: 20210728
  Receipt Date: 20211031
  Transmission Date: 20220303
  Serious: Yes (Other)
  Sender: FDA-Public Use
  Company Number: JP-JNJFOC-20210756201

PATIENT
  Age: 70 Year
  Sex: Male
  Weight: 46 kg

DRUGS (9)
  1. STELARA [Suspect]
     Active Substance: USTEKINUMAB
     Indication: Colitis ulcerative
     Dosage: USTEKINUMAB (GENETICAL RECOMBINATION):130MG
     Route: 042
     Dates: start: 20210316
  2. STELARA [Suspect]
     Active Substance: USTEKINUMAB
     Dosage: USTEKINUMAB (GENETICAL RECOMBINATION):45 MG
     Route: 058
     Dates: start: 20210511
  3. BIO-THREE [Concomitant]
     Active Substance: HERBALS
     Route: 065
  4. BIFIDOBACTERIUM SPP. [Concomitant]
     Active Substance: BIFIDOBACTERIUM SPP.
     Route: 065
  5. VONOPRAZAN FUMARATE [Concomitant]
     Active Substance: VONOPRAZAN FUMARATE
     Route: 065
  6. ETIZOLAM [Concomitant]
     Active Substance: ETIZOLAM
     Route: 065
  7. PENTASA [Concomitant]
     Active Substance: MESALAMINE
     Route: 065
  8. PREDONINE [Concomitant]
     Active Substance: PREDNISOLONE
     Route: 065
  9. CELECOXIB [Concomitant]
     Active Substance: CELECOXIB

REACTIONS (1)
  - Hepatic function abnormal [Not Recovered/Not Resolved]

NARRATIVE: CASE EVENT DATE: 20210608
